FAERS Safety Report 9612839 (Version 1)
Quarter: 2013Q4

REPORT INFORMATION
  Report Type: Spontaneous
  Country: US (occurrence: None)
  Receive Date: 20131008
  Receipt Date: 20131008
  Transmission Date: 20140711
  Serious: No
  Sender: FDA-Public Use
  Company Number: US-RRD-13-00009

PATIENT
  Age: 31 Year
  Sex: Male

DRUGS (1)
  1. PANHEMATIN [Suspect]
     Indication: PORPHYRIA
     Dosage: UNKNOWN, INTRAVENOUS DRIP
     Route: 041

REACTIONS (3)
  - Chest discomfort [None]
  - Dyspnoea [None]
  - Chest pain [None]
